FAERS Safety Report 13499909 (Version 1)
Quarter: 2017Q2

REPORT INFORMATION
  Report Type: Spontaneous
  Country: US (occurrence: US)
  Receive Date: 20170501
  Receipt Date: 20170501
  Transmission Date: 20170830
  Serious: No
  Sender: FDA-Public Use
  Company Number: US-AKRIMAX-TIR-2017-0180

PATIENT
  Age: 30 Year
  Sex: Female

DRUGS (5)
  1. TIROSINT [Suspect]
     Active Substance: LEVOTHYROXINE SODIUM
     Indication: HYPOTHYROIDISM
     Dosage: 38MCG DAILY
     Route: 048
  2. TIROSINT [Suspect]
     Active Substance: LEVOTHYROXINE SODIUM
     Dosage: 25MCG CAPSULES ALTERNATING WITH 13MCG CAPSULES
     Route: 048
  3. TIROSINT [Suspect]
     Active Substance: LEVOTHYROXINE SODIUM
     Dosage: 25MCG CAPSULES ALTERNATING WITH 13MCG CAPSULES
     Route: 048
  4. TIROSINT [Suspect]
     Active Substance: LEVOTHYROXINE SODIUM
     Indication: HYPOTHYROIDISM
     Route: 048
  5. TIROSINT [Suspect]
     Active Substance: LEVOTHYROXINE SODIUM
     Indication: HYPOTHYROIDISM
     Dosage: 38MCG DAILY
     Route: 048

REACTIONS (5)
  - Thyroid function test abnormal [Unknown]
  - Fatigue [Unknown]
  - Anxiety [Unknown]
  - Adverse event [Unknown]
  - Hyperthyroidism [Unknown]
